FAERS Safety Report 8914148 (Version 1)
Quarter: 2012Q4

REPORT INFORMATION
  Report Type: 
  Country: US (occurrence: US)
  Receive Date: 20121119
  Receipt Date: 20121119
  Transmission Date: 20130627
  Serious: Yes (Hospitalization)
  Sender: FDA-Public Use
  Company Number: US-BAYER-2012-118553

PATIENT
  Age: 34 Year
  Sex: Female
  Weight: 60.77 kg

DRUGS (3)
  1. YAZ [Suspect]
  2. YASMIN [Suspect]
  3. EFFEXOR XR [Concomitant]
     Indication: DEPRESSION
     Dosage: 75 mg, UNK
     Dates: start: 20090625, end: 20100528

REACTIONS (1)
  - Pulmonary embolism [None]
